FAERS Safety Report 20051863 (Version 1)
Quarter: 2021Q4

REPORT INFORMATION
  Report Type: Other
  Country: US (occurrence: None)
  Receive Date: 20211110
  Receipt Date: 20211110
  Transmission Date: 20220303
  Serious: No
  Sender: FDA-Public Use
  Company Number: US-ROCHE-2950397

PATIENT
  Sex: Female

DRUGS (1)
  1. OCREVUS [Suspect]
     Active Substance: OCRELIZUMAB
     Indication: Multiple sclerosis
     Dosage: PATIENT LAST INFUSION 06/19/2020, AND NEXT INFUSION ON 20/APR/2021
     Route: 065

REACTIONS (2)
  - COVID-19 [Unknown]
  - Illness [Unknown]
